FAERS Safety Report 8911593 (Version 1)
Quarter: 2012Q4

REPORT INFORMATION
  Report Type: 
  Country: SE (occurrence: SE)
  Receive Date: 20121116
  Receipt Date: 20121116
  Transmission Date: 20130627
  Serious: Yes (Hospitalization, Other)
  Sender: FDA-Public Use
  Company Number: SE-PFIZER INC-2012283584

PATIENT
  Age: 36 Year
  Sex: Female
  Weight: 53.7 kg

DRUGS (7)
  1. GENOTROPIN [Suspect]
     Dosage: 0.13 mg, 1x/day,7 injections/week
     Route: 058
     Dates: start: 20000825
  2. LEVOTHYROXINE [Concomitant]
     Indication: THYROID DISORDER
     Dosage: UNK
     Dates: start: 19780701
  3. LEVOTHYROXINE [Concomitant]
     Indication: PRIMARY HYPOTHYROIDISM
  4. TEGRETOL - SLOW RELEASE [Concomitant]
     Indication: CONVULSIONS
     Dosage: UNK
     Dates: start: 19850701
  5. TEGRETOL - SLOW RELEASE [Concomitant]
     Indication: EPILEPSY
  6. SABRIL [Concomitant]
     Indication: CONVULSIONS
     Dosage: UNK
     Dates: start: 19940701
  7. SABRIL [Concomitant]
     Indication: EPILEPSY

REACTIONS (1)
  - Epilepsy [Unknown]
